FAERS Safety Report 6216807-4 (Version None)
Quarter: 2009Q2

REPORT INFORMATION
  Report Type: 
  Country: None (occurrence: None)
  Receive Date: 20090603
  Receipt Date: 20090603
  Transmission Date: 20091009
  Serious: Yes (Other)
  Sender: FDA-Public Use
  Company Number: None

PATIENT
  Sex: Female
  Weight: 52.1637 kg

DRUGS (1)
  1. EC NAPROXEN TAB 500 [Suspect]
     Indication: PAIN
     Dosage: ONE 2 X DAY
     Dates: start: 20090518

REACTIONS (4)
  - DRUG HYPERSENSITIVITY [None]
  - HYPERHIDROSIS [None]
  - LETHARGY [None]
  - MUSCLE DISORDER [None]
